FAERS Safety Report 6993049-6 (Version None)
Quarter: 2010Q3

REPORT INFORMATION
  Report Type: 
  Country: None (occurrence: None)
  Receive Date: 20100917
  Receipt Date: 20100517
  Transmission Date: 20110219
  Serious: No
  Sender: FDA-Public Use
  Company Number: US-ASTRAZENECA-2010SE22449

PATIENT
  Sex: Female
  Weight: 84.8 kg

DRUGS (1)
  1. SEROQUEL XR [Suspect]
     Route: 048

REACTIONS (5)
  - DRUG DOSE OMISSION [None]
  - INCREASED APPETITE [None]
  - INSOMNIA [None]
  - NASAL CONGESTION [None]
  - OROPHARYNGEAL PAIN [None]
